FAERS Safety Report 9110217 (Version 1)
Quarter: 2013Q1

REPORT INFORMATION
  Report Type: Spontaneous
  Country: CA (occurrence: CA)
  Receive Date: 20130222
  Receipt Date: 20130222
  Transmission Date: 20140127
  Serious: Yes (Death, Hospitalization)
  Sender: FDA-Public Use
  Company Number: CA-ROCHE-1193272

PATIENT
  Age: 65 Year
  Sex: Female
  Weight: 68 kg

DRUGS (6)
  1. RITUXAN [Suspect]
     Indication: PRODUCT USED FOR UNKNOWN INDICATION
     Route: 042
  2. PREDNISONE [Suspect]
     Indication: PRODUCT USED FOR UNKNOWN INDICATION
     Route: 048
  3. CITALOPRAM [Concomitant]
     Route: 065
  4. DIDROCAL [Concomitant]
     Route: 065
  5. METHOTREXATE [Concomitant]
     Route: 065
  6. TYLENOL WITH CODEINE #4 [Concomitant]
     Route: 065

REACTIONS (4)
  - Bilevel positive airway pressure [Fatal]
  - Depressed level of consciousness [Fatal]
  - Pneumonia [Fatal]
  - Pulmonary embolism [Fatal]
